FAERS Safety Report 5920270-8 (Version None)
Quarter: 2008Q4

REPORT INFORMATION
  Report Type: 
  Country: None (occurrence: None)
  Receive Date: 20081014
  Receipt Date: 20081006
  Transmission Date: 20090506
  Serious: Yes (Other)
  Sender: FDA-Public Use
  Company Number: 2008SP020353

PATIENT
  Age: 45 Year
  Sex: Male

DRUGS (3)
  1. REBETOL [Suspect]
     Indication: HEPATITIS C
     Dosage: ; PO
     Route: 048
     Dates: start: 20080601
  2. PEGASYS [Suspect]
     Indication: HEPATITIS C
     Dosage: ; SC
     Route: 058
     Dates: start: 20080601
  3. ANTIRETROVIRALS [Concomitant]

REACTIONS (1)
  - THROMBOCYTOPENIC PURPURA [None]
